FAERS Safety Report 8241190-2 (Version None)
Quarter: 2012Q1

REPORT INFORMATION
  Report Type: 
  Country: None (occurrence: None)
  Receive Date: 20120328
  Receipt Date: 20120321
  Transmission Date: 20120608
  Serious: Yes (Hospitalization, Other)
  Sender: FDA-Public Use
  Company Number: US-ASTRAZENECA-2010SE51004

PATIENT
  Sex: Female
  Weight: 122.5 kg

DRUGS (14)
  1. SIMVASTATIN [Concomitant]
     Indication: BLOOD CHOLESTEROL ABNORMAL
  2. BUPROPION HYDROCHLORIDE [Concomitant]
     Indication: ANXIETY
  3. LAMOTRGINE [Concomitant]
     Dosage: TWO TIMES A DAY
  4. NAPROXEN [Concomitant]
     Indication: ARTHRALGIA
  5. LORAZEPAM [Concomitant]
     Indication: ANXIETY
  6. SEROQUEL [Suspect]
     Indication: BIPOLAR DISORDER
     Route: 048
  7. ASPIRIN [Concomitant]
     Indication: CARDIOVASCULAR EVENT PROPHYLAXIS
  8. SEROQUEL [Suspect]
     Indication: ANXIETY
     Route: 048
  9. FLUOXETINE [Concomitant]
     Indication: ANXIETY
  10. BUPROPION HYDROCHLORIDE [Concomitant]
     Indication: DEPRESSION
  11. LISINOPRIL [Concomitant]
     Indication: CARDIAC DISORDER
  12. HYDROCODONE [Concomitant]
     Indication: ARTHRALGIA
     Dosage: 7.5/500 PRN
  13. SEROQUEL [Suspect]
     Indication: INSOMNIA
     Route: 048
  14. DILTIAZEM HCL [Concomitant]
     Indication: HYPERTENSION

REACTIONS (5)
  - VASCULITIS [None]
  - FALL [None]
  - FOOT FRACTURE [None]
  - MUSCLE SPASMS [None]
  - ARTHRITIS [None]
